FAERS Safety Report 4915648-5 (Version None)
Quarter: 2006Q1

REPORT INFORMATION
  Report Type: 
  Country: None (occurrence: None)
  Receive Date: 20060217
  Receipt Date: 20060208
  Transmission Date: 20060701
  Serious: Yes (Hospitalization)
  Sender: FDA-Public Use
  Company Number: FR-BRISTOL-MYERS SQUIBB COMPANY-13277512

PATIENT
  Age: 77 Year
  Sex: Male

DRUGS (2)
  1. COAPROVEL TABS [Suspect]
     Route: 048
     Dates: end: 20051231
  2. DEROXAT [Suspect]
     Route: 048
     Dates: start: 20051201, end: 20051201

REACTIONS (3)
  - CONFUSIONAL STATE [None]
  - HYPONATRAEMIA [None]
  - SPEECH DISORDER [None]
